FAERS Safety Report 6015941-1 (Version None)
Quarter: 2008Q4

REPORT INFORMATION
  Report Type: 
  Country: None (occurrence: None)
  Receive Date: 20081216
  Receipt Date: 20080410
  Transmission Date: 20090506
  Serious: Yes (Other)
  Sender: FDA-Public Use
  Company Number: US-WYE-H03549008

PATIENT
  Age: 53 Year
  Sex: Female
  Weight: 106.69 kg

DRUGS (7)
  1. EFFEXOR XR [Suspect]
     Indication: DEPRESSION
     Dosage: 150 MG 1X PER 1 DAY, ORAL
     Route: 048
     Dates: start: 20080129, end: 20080410
  2. ALLEGRA [Concomitant]
  3. TOPROL-XL [Concomitant]
  4. ALTACE [Concomitant]
  5. REQUIP [Concomitant]
  6. LOVAZA [Concomitant]
  7. CENTRUM (MULTIVITAMIN/MULTIMINERAL) [Concomitant]

REACTIONS (3)
  - CONDITION AGGRAVATED [None]
  - HYPERTENSION [None]
  - PALPITATIONS [None]
